FAERS Safety Report 22104090 (Version 1)
Quarter: 2023Q1

REPORT INFORMATION
  Report Type: Spontaneous
  Country: US (occurrence: None)
  Receive Date: 20230316
  Receipt Date: 20230316
  Transmission Date: 20230418
  Serious: Yes (Hospitalization)
  Sender: FDA-Public Use
  Company Number: None

PATIENT
  Age: 63 Year
  Sex: Male
  Weight: 104.78 kg

DRUGS (14)
  1. ABIRATERONE [Suspect]
     Active Substance: ABIRATERONE
     Indication: Prostate cancer
     Dosage: OTHER FREQUENCY : NIGHTLY;?
     Route: 048
     Dates: start: 202302
  2. ATORVASTATIN [Concomitant]
     Active Substance: ATORVASTATIN
  3. CICLOPIROX [Concomitant]
     Active Substance: CICLOPIROX
  4. FIORINAL [Concomitant]
  5. LUPRON [Concomitant]
     Active Substance: LEUPROLIDE ACETATE
  6. NITROSTAT [Concomitant]
     Active Substance: NITROGLYCERIN
  7. OMEPRAZOLE [Concomitant]
     Active Substance: OMEPRAZOLE
  8. PREDNISONE [Concomitant]
     Active Substance: PREDNISONE
  9. SOTALOL [Concomitant]
     Active Substance: SOTALOL
  10. TAMSULOSIN [Concomitant]
     Active Substance: TAMSULOSIN
  11. TRAMADOL [Concomitant]
     Active Substance: TRAMADOL
  12. TRIAMCINOLONE [Concomitant]
     Active Substance: TRIAMCINOLONE
  13. VITAMIN B12 [Concomitant]
     Active Substance: CYANOCOBALAMIN
  14. XARELTO [Concomitant]
     Active Substance: RIVAROXABAN

REACTIONS (1)
  - Dyspepsia [None]
